FAERS Safety Report 5279439-0 (Version None)
Quarter: 2007Q1

REPORT INFORMATION
  Report Type: 
  Country: None (occurrence: None)
  Receive Date: 20070328
  Receipt Date: 20070315
  Transmission Date: 20070707
  Serious: Yes (Hospitalization)
  Sender: FDA-Public Use
  Company Number: DE-ELI_LILLY_AND_COMPANY-DE200703003867

PATIENT
  Age: 64 Year
  Sex: Male

DRUGS (17)
  1. CYMBALTA [Suspect]
     Indication: DRUG ABUSER
     Dosage: 30 MG, DAILY (1/D)
     Route: 048
     Dates: start: 20070105, end: 20070107
  2. CYMBALTA [Suspect]
     Dosage: 60 MG, DAILY (1/D)
     Route: 048
     Dates: start: 20070108, end: 20070110
  3. ASPIRIN [Concomitant]
     Indication: ANALGESIC THERAPY
     Dosage: 100 MG, DAILY (1/D)
     Route: 048
  4. PLAVIX [Concomitant]
     Dosage: UNK, DAILY (1/D)
     Route: 048
  5. SIMVAHEXAL [Concomitant]
     Dosage: 80 MG, DAILY (1/D)
     Route: 048
  6. MOLSIDOMIN [Concomitant]
     Dosage: 8 MG, DAILY (1/D)
     Route: 047
  7. BISOHEXAL [Concomitant]
     Dosage: 10 MG, DAILY (1/D)
     Route: 048
  8. ESIDRIX [Concomitant]
     Dosage: 12.5 MG, DAILY (1/D)
     Route: 048
  9. MIRTAZAPINE [Concomitant]
     Dosage: 15 MG, DAILY (1/D)
     Route: 048
  10. PANTOZOL [Concomitant]
     Dosage: 40 MG, DAILY (1/D)
     Route: 048
  11. PENTAERYTHRITOL TETRANITRATE [Concomitant]
     Dosage: 230 MG, DAILY (1/D)
     Route: 048
  12. DECORTIN [Concomitant]
     Dosage: 25 MG, DAILY (1/D)
     Route: 048
  13. VIGANTOLETTEN [Concomitant]
     Dosage: 1000 MG, DAILY (1/D)
     Route: 048
  14. ATACAND [Concomitant]
     Dosage: 16 MG, DAILY (1/D)
     Route: 048
  15. NORVASC [Concomitant]
     Dosage: 5 MG, DAILY (1/D)
     Route: 048
  16. LYRICA [Concomitant]
     Dosage: 75 MG, DAILY (1/D)
     Route: 048
     Dates: start: 20061229, end: 20061230
  17. LYRICA [Concomitant]
     Dosage: 150 MG, DAILY (1/D)
     Route: 048
     Dates: start: 20061231

REACTIONS (4)
  - CARDIOVASCULAR DISORDER [None]
  - CIRCULATORY COLLAPSE [None]
  - DIZZINESS [None]
  - FALL [None]
